FAERS Safety Report 8131888-9 (Version None)
Quarter: 2012Q1

REPORT INFORMATION
  Report Type: 
  Country: None (occurrence: None)
  Receive Date: 20120208
  Receipt Date: 20120125
  Transmission Date: 20120608
  Serious: Yes (Hospitalization, Other)
  Sender: FDA-Public Use
  Company Number: KAD201201-000096

PATIENT
  Age: 54 Year
  Sex: Male

DRUGS (14)
  1. RIBAVIRIN [Suspect]
     Indication: HEPATITIS C
     Dosage: 1000 MG, 3 PILLS MORNING AND 2 PILLS EVENING 600 MG, 3 PILLS EVERY DAY
     Dates: start: 20111001
  2. INCIVEK [Suspect]
     Indication: HEPATITIS C
     Dosage: TWO DOSES THREE TIMES DAILY, ORAL
     Route: 048
     Dates: start: 20111001, end: 20120101
  3. FLONASE [Concomitant]
  4. PEGASYS [Suspect]
     Indication: HEPATITIS C
     Dosage: 180 MCG A WEEK, SUBCUTANEOUS
     Route: 058
     Dates: start: 20111001
  5. LOSARTAN POTASSIUM [Concomitant]
  6. XOPENEX [Concomitant]
  7. CARAFATE [Concomitant]
  8. SYMBICORT [Concomitant]
  9. SPIRIVA [Concomitant]
  10. CALCIUM VITAMIN D [Concomitant]
  11. MICARDIS [Concomitant]
  12. HYDROCHLOROTHIAZIDE [Concomitant]
  13. NEXIUM [Concomitant]
  14. POTASSIUM CHLORIDE [Concomitant]

REACTIONS (21)
  - DRY MOUTH [None]
  - WHITE BLOOD CELL COUNT DECREASED [None]
  - ASTHMA [None]
  - CONDITION AGGRAVATED [None]
  - DRY SKIN [None]
  - DIARRHOEA [None]
  - PANCREATIC ENZYMES INCREASED [None]
  - PAIN [None]
  - VOMITING [None]
  - PANCREATITIS [None]
  - FATIGUE [None]
  - NAUSEA [None]
  - PRURITUS [None]
  - SYNCOPE [None]
  - ABDOMINAL PAIN UPPER [None]
  - PYREXIA [None]
  - BLOOD POTASSIUM ABNORMAL [None]
  - ANAEMIA [None]
  - DYSGEUSIA [None]
  - WEIGHT DECREASED [None]
  - ARTHRALGIA [None]
